FAERS Safety Report 7484186-0 (Version None)
Quarter: 2011Q2

REPORT INFORMATION
  Report Type: 
  Country: None (occurrence: None)
  Receive Date: 20110517
  Receipt Date: 20110511
  Transmission Date: 20111010
  Serious: Yes (Other)
  Sender: FDA-Public Use
  Company Number: IL-GENZYME-CAMP-1001103

PATIENT
  Sex: Female
  Weight: 70 kg

DRUGS (4)
  1. METHYLPEDNISOLONE SODIUM SUCCINATE [Concomitant]
     Indication: MULTIPLE SCLEROSIS
     Dosage: 1 G, QDX3
     Route: 042
     Dates: start: 20090517, end: 20090519
  2. CAMPATH [Suspect]
     Indication: MULTIPLE SCLEROSIS
     Dosage: 12 MG, QDX5
     Route: 042
     Dates: start: 20090517, end: 20090521
  3. METHYLPEDNISOLONE SODIUM SUCCINATE [Concomitant]
     Dosage: 1.0 G, QDX3
     Route: 042
     Dates: start: 20100502, end: 20100504
  4. CAMPATH [Suspect]
     Dosage: 12 MG, QDX3
     Route: 042
     Dates: start: 20100502, end: 20100504

REACTIONS (1)
  - ABORTION SPONTANEOUS [None]
